FAERS Safety Report 6957007-X (Version None)
Quarter: 2010Q3

REPORT INFORMATION
  Report Type: 
  Country: None (occurrence: None)
  Receive Date: 20100827
  Receipt Date: 20100827
  Transmission Date: 20110219
  Serious: Yes (Hospitalization)
  Sender: FDA-Public Use
  Company Number: None

PATIENT
  Age: 66 Year
  Sex: Male
  Weight: 89.3586 kg

DRUGS (7)
  1. SAHA (VORINOSTAT) 400MG PO QD [Suspect]
     Indication: COLORECTAL CANCER
     Dosage: SEE ABOVE
     Dates: start: 20100804, end: 20100824
  2. HYDROXYCHLOROQUINE SULFATE [Suspect]
     Dosage: SEE ABOVE
     Dates: start: 20100804, end: 20100824
  3. GLYBURIDE AND METFORMIN HYDROCHLORIDE [Concomitant]
  4. LOSARTAN POTASSIUM [Concomitant]
  5. ASPIRIN [Concomitant]
  6. VITAMIN B-12 [Concomitant]
  7. DIFLUCAN [Concomitant]

REACTIONS (6)
  - ASTHENIA [None]
  - BLOOD GLUCOSE INCREASED [None]
  - CANDIDIASIS [None]
  - DYSPNOEA [None]
  - POLYDIPSIA [None]
  - POLYURIA [None]
